FAERS Safety Report 9640439 (Version 1)
Quarter: 2013Q4

REPORT INFORMATION
  Report Type: Spontaneous
  Country: US (occurrence: None)
  Receive Date: 20131022
  Receipt Date: 20131022
  Transmission Date: 20140711
  Serious: Yes (Disabling)
  Sender: FDA-Public Use
  Company Number: None

PATIENT
  Age: 80 None
  Sex: Female
  Weight: 52.16 kg

DRUGS (14)
  1. CELEBREX [Suspect]
     Indication: ARTHRITIS
     Dates: start: 20130814, end: 20130814
  2. VESICARE [Concomitant]
  3. NORCO [Concomitant]
  4. ISOSORB MONO [Concomitant]
  5. WARFARIN [Concomitant]
  6. CARVEDILOL [Concomitant]
  7. OMEPRAZOLE [Concomitant]
  8. TEMAZPAM [Concomitant]
  9. TRAMADIACE [Concomitant]
  10. MULTIVITAMIN [Concomitant]
  11. FISH OIL [Concomitant]
  12. ALBUTEROL NEBULIZER [Concomitant]
  13. PRO AIR [Concomitant]
  14. SPIRIVA [Concomitant]

REACTIONS (3)
  - Dyspnoea [None]
  - Malaise [None]
  - Diarrhoea [None]
